FAERS Safety Report 14336177 (Version 1)
Quarter: 2017Q4

REPORT INFORMATION
  Report Type: Report from Study
  Country: CO (occurrence: CO)
  Receive Date: 20171229
  Receipt Date: 20171229
  Transmission Date: 20180321
  Serious: Yes (Hospitalization)
  Sender: FDA-Public Use
  Company Number: CO-ASTELLAS-2017US056145

PATIENT
  Age: 54 Year
  Sex: Male

DRUGS (2)
  1. MYCOPHENOLATE [Concomitant]
     Active Substance: MYCOPHENOLIC ACID
     Indication: RENAL TRANSPLANT
     Dosage: 720 UNK, UNKNOWN FREQ.
     Route: 048
     Dates: start: 20151208, end: 20161010
  2. TACROLIMUS. [Suspect]
     Active Substance: TACROLIMUS
     Indication: RENAL TRANSPLANT
     Dosage: 8 MG (3MG AND 5MG), ONCE DAILY
     Route: 048
     Dates: start: 20151208

REACTIONS (4)
  - Diarrhoea [Recovered/Resolved]
  - Kidney infection [Recovered/Resolved]
  - Viral infection [Recovered/Resolved]
  - Renal disorder [Unknown]

NARRATIVE: CASE EVENT DATE: 20161010
